FAERS Safety Report 13707307 (Version 1)
Quarter: 2017Q2

REPORT INFORMATION
  Report Type: Spontaneous
  Country: IT (occurrence: IT)
  Receive Date: 20170630
  Receipt Date: 20170630
  Transmission Date: 20170830
  Serious: Yes (Other)
  Sender: FDA-Public Use
  Company Number: IT-SA-2017SA113768

PATIENT
  Age: 90 Year
  Sex: Male

DRUGS (22)
  1. SOLOSTAR [Concomitant]
     Active Substance: DEVICE
  2. TALOFEN [Concomitant]
     Active Substance: PROMAZINE HYDROCHLORIDE
     Dosage: 4G/100ML ORAL DROPS SOLUTION VIAL 30ML
  3. LEXOTAN [Suspect]
     Active Substance: BROMAZEPAM
     Dosage: DOSE- 10 DROP
     Route: 048
  4. ABASAGLAR [Suspect]
     Active Substance: INSULIN GLARGINE
     Route: 058
  5. LANSOPRAZOLE. [Concomitant]
     Active Substance: LANSOPRAZOLE
     Route: 065
  6. DILATREND [Concomitant]
     Active Substance: CARVEDILOL
     Route: 065
  7. APIDRA [Suspect]
     Active Substance: INSULIN GLULISINE
     Route: 058
  8. TAVOR (LORAZEPAM) [Suspect]
     Active Substance: LORAZEPAM
     Route: 048
  9. FINASTID [Concomitant]
     Route: 065
  10. APIDRA [Suspect]
     Active Substance: INSULIN GLULISINE
     Dosage: DOSE:8 UNIT(S)
     Route: 058
  11. LANOXIN [Concomitant]
     Active Substance: DIGOXIN
     Route: 065
  12. SOLOSTAR [Concomitant]
     Active Substance: DEVICE
  13. DELTACORTENE [Concomitant]
     Active Substance: PREDNISONE
     Route: 065
  14. ABASAGLAR [Suspect]
     Active Substance: INSULIN GLARGINE
     Route: 058
  15. KWIKPEN [Concomitant]
  16. KWIKPEN [Concomitant]
  17. LEXOTAN [Suspect]
     Active Substance: BROMAZEPAM
     Dosage: DOSE- 15 DROP
     Route: 048
  18. LASIX [Concomitant]
     Active Substance: FUROSEMIDE
     Route: 065
  19. ORAMORPH [Concomitant]
     Active Substance: MORPHINE SULFATE
     Dosage: 10MG/5ML ORAL SOLUTION- 20 CONCENTRATE MONODOSE 5ML
  20. APIXABAN [Concomitant]
     Active Substance: APIXABAN
     Route: 065
  21. EUTIMIL [Concomitant]
     Active Substance: PAROXETINE HYDROCHLORIDE
     Route: 065
  22. TAPAZOLE [Concomitant]
     Active Substance: METHIMAZOLE
     Route: 065

REACTIONS (2)
  - Sopor [Recovering/Resolving]
  - Hypoglycaemia [Recovering/Resolving]

NARRATIVE: CASE EVENT DATE: 20160909
